FAERS Safety Report 4502280-0 (Version None)
Quarter: 2004Q4

REPORT INFORMATION
  Report Type: 
  Country: None (occurrence: None)
  Receive Date: 20041110
  Receipt Date: 20041028
  Transmission Date: 20050328
  Serious: Yes (Other)
  Sender: FDA-Public Use
  Company Number: 2004082092

PATIENT
  Age: 60 Year
  Sex: Female
  Weight: 65 kg

DRUGS (1)
  1. HYDROCORTISONE [Suspect]
     Indication: HYPOPHYSITIS
     Dosage: ORAL
     Route: 048

REACTIONS (4)
  - AUTOIMMUNE THYROIDITIS [None]
  - CRANIOPHARYNGIOMA [None]
  - DIABETES INSIPIDUS [None]
  - RATHKE'S CLEFT CYST [None]
